FAERS Safety Report 5318934-2 (Version None)
Quarter: 2007Q2

REPORT INFORMATION
  Report Type: 
  Country: None (occurrence: None)
  Receive Date: 20070503
  Receipt Date: 20070503
  Transmission Date: 20071010
  Serious: No
  Sender: FDA-Public Use
  Company Number: None

PATIENT

DRUGS (2)
  1. SERTRALINE [Suspect]
     Indication: DEPRESSION
     Dosage: 50MG  ONCE A DAY  PO
     Route: 048
     Dates: start: 20070226, end: 20070313
  2. SERTRALINE [Suspect]
     Indication: PANIC ATTACK
     Dosage: 50MG  ONCE A DAY  PO
     Route: 048
     Dates: start: 20070226, end: 20070313

REACTIONS (6)
  - DEPRESSION [None]
  - DISEASE RECURRENCE [None]
  - FEELING JITTERY [None]
  - INSOMNIA [None]
  - PANIC ATTACK [None]
  - THERAPEUTIC RESPONSE UNEXPECTED WITH DRUG SUBSTITUTION [None]
